FAERS Safety Report 12967854 (Version 1)
Quarter: 2016Q4

REPORT INFORMATION
  Report Type: Spontaneous
  Country: GB (occurrence: US)
  Receive Date: 20161122
  Receipt Date: 20161122
  Transmission Date: 20170207
  Serious: Yes (Other)
  Sender: FDA-Public Use
  Company Number: None

PATIENT
  Age: 28 Year
  Sex: Male
  Weight: 50 kg

DRUGS (2)
  1. RETINO-A [Suspect]
     Active Substance: TRETINOIN
     Indication: ACNE
     Route: 061
  2. ISOTREX [Suspect]
     Active Substance: ISOTRETINOIN

REACTIONS (2)
  - Skin striae [None]
  - Scar [None]

NARRATIVE: CASE EVENT DATE: 20161003
